FAERS Safety Report 22650563 (Version 1)
Quarter: 2023Q2

REPORT INFORMATION
  Report Type: Spontaneous
  Country: US (occurrence: US)
  Receive Date: 20230628
  Receipt Date: 20230628
  Transmission Date: 20230722
  Serious: No
  Sender: FDA-Public Use
  Company Number: US-GILEAD-2023-0632971

PATIENT
  Age: 48 Year
  Sex: Male

DRUGS (2)
  1. LENACAPAVIR [Suspect]
     Active Substance: LENACAPAVIR
     Indication: HIV infection
     Dosage: UNK
     Route: 065
  2. TROGARZO [Concomitant]
     Active Substance: IBALIZUMAB-UIYK
     Indication: HIV infection

REACTIONS (1)
  - Injection site mass [Recovering/Resolving]
